FAERS Safety Report 9406791 (Version 2)
Quarter: 2013Q4

REPORT INFORMATION
  Report Type: Spontaneous
  Country: GB (occurrence: GB)
  Receive Date: 20130718
  Receipt Date: 20131204
  Transmission Date: 20140711
  Serious: Yes (Death, Other)
  Sender: FDA-Public Use
  Company Number: GB-BANPHARM-20131478

PATIENT
  Age: 42 Year
  Sex: Female

DRUGS (7)
  1. IBUPROFEN UNKNOWN PRODUCT [Suspect]
     Indication: PRODUCT USED FOR UNKNOWN INDICATION
  2. CANNABIS SATIVA [Suspect]
     Indication: PRODUCT USED FOR UNKNOWN INDICATION
  3. COCAINE [Suspect]
     Indication: PRODUCT USED FOR UNKNOWN INDICATION
  4. DIAZEPAM [Suspect]
     Indication: PRODUCT USED FOR UNKNOWN INDICATION
     Dosage: 20 MG,
     Route: 048
  5. SUBUTEX [Suspect]
     Indication: PRODUCT USED FOR UNKNOWN INDICATION
     Dosage: 4 MG,
     Route: 048
  6. DESMETHYLDIAZEPAM [Suspect]
  7. OXAZEPAM [Suspect]

REACTIONS (3)
  - Toxicity to various agents [Fatal]
  - Exposure during pregnancy [Recovered/Resolved]
  - Overdose [Fatal]
